FAERS Safety Report 7659856-1 (Version None)
Quarter: 2011Q3

REPORT INFORMATION
  Report Type: 
  Country: None (occurrence: None)
  Receive Date: 20110805
  Receipt Date: 20110729
  Transmission Date: 20111222
  Serious: No
  Sender: FDA-Public Use
  Company Number: US-ABBOTT-11P-163-0843128-00

PATIENT

DRUGS (2)
  1. DEPAKOTE ER [Suspect]
     Indication: PANIC ATTACK
     Dates: start: 20110501
  2. XANAX [Concomitant]
     Indication: PANIC ATTACK

REACTIONS (5)
  - NEUROLOGICAL EXAMINATION ABNORMAL [None]
  - SUICIDAL IDEATION [None]
  - MEMORY IMPAIRMENT [None]
  - FEELING ABNORMAL [None]
  - AMMONIA INCREASED [None]
